FAERS Safety Report 6273442-X (Version None)
Quarter: 2009Q3

REPORT INFORMATION
  Report Type: 
  Country: None (occurrence: None)
  Receive Date: 20090715
  Receipt Date: 20090703
  Transmission Date: 20100115
  Serious: Yes (Hospitalization)
  Sender: FDA-Public Use
  Company Number: 2009-02539

PATIENT
  Age: 79 Year
  Sex: Female
  Weight: 52 kg

DRUGS (7)
  1. VELCADE [Suspect]
     Indication: MULTIPLE MYELOMA
     Dosage: 2 MG, INTRAVENOUS
     Route: 042
     Dates: start: 20090316, end: 20090326
  2. MELPHALAN [Concomitant]
  3. PREDNISONE TAB [Concomitant]
  4. CORDARONE [Concomitant]
  5. OMEPRAZOLE [Concomitant]
  6. ZOMETA [Concomitant]
  7. ACYCLOVIR [Concomitant]

REACTIONS (2)
  - ILEUS PARALYTIC [None]
  - URINARY RETENTION [None]
